FAERS Safety Report 16324128 (Version 2)
Quarter: 2019Q4

REPORT INFORMATION
  Report Type: Spontaneous
  Country: US (occurrence: US)
  Receive Date: 20190517
  Receipt Date: 20191226
  Transmission Date: 20200122
  Serious: No
  Sender: FDA-Public Use
  Company Number: US-GLAXOSMITHKLINE-US2019AMR082977

PATIENT
  Sex: Female
  Weight: 82.1 kg

DRUGS (1)
  1. NUCALA [Suspect]
     Active Substance: MEPOLIZUMAB
     Indication: ASTHMA
     Dosage: UNK
     Route: 065
     Dates: start: 20180809, end: 20190227

REACTIONS (5)
  - Dizziness [Unknown]
  - Nausea [Unknown]
  - Condition aggravated [Unknown]
  - Chest discomfort [Unknown]
  - Drug ineffective [Unknown]
